FAERS Safety Report 11062693 (Version 1)
Quarter: 2015Q2

REPORT INFORMATION
  Report Type: Spontaneous
  Country: DE (occurrence: DE)
  Receive Date: 20150424
  Receipt Date: 20150424
  Transmission Date: 20150821
  Serious: Yes (Death)
  Sender: FDA-Public Use
  Company Number: DE-TEVA-555262GER

PATIENT
  Age: 71 Year
  Sex: Female
  Weight: 60 kg

DRUGS (11)
  1. SIMVASTATIN. [Concomitant]
     Active Substance: SIMVASTATIN
     Dosage: 40 MILLIGRAM DAILY;
  2. AMOCLAV 875/125 [Concomitant]
     Dosage: 2 DOSAGE FORMS DAILY;
     Dates: end: 20150302
  3. RAMIPRIL. [Concomitant]
     Active Substance: RAMIPRIL
     Dosage: 10 MILLIGRAM DAILY;
  4. METFORMIN [Suspect]
     Active Substance: METFORMIN HYDROCHLORIDE
     Indication: TYPE 2 DIABETES MELLITUS
     Dosage: 2000 MILLIGRAM DAILY;
     Route: 048
  5. CALCIMAGON D3 [Concomitant]
     Active Substance: CALCIUM\CHOLECALCIFEROL
     Dosage: 2 DOSAGE FORMS DAILY;
  6. LYRICA [Concomitant]
     Active Substance: PREGABALIN
     Dosage: 50 MILLIGRAM DAILY;
  7. SPASMEX 30 [Concomitant]
     Dosage: 1/2-1/2-1
  8. ACETYLSALICYLIC ACID [Concomitant]
     Active Substance: ASPIRIN
     Dosage: 100 MILLIGRAM DAILY;
  9. FUROSEMID [Concomitant]
     Active Substance: FUROSEMIDE
     Dosage: 80 MILLIGRAM DAILY;
  10. PANTOPRAZOLE SODIUM. [Concomitant]
     Active Substance: PANTOPRAZOLE SODIUM
     Dosage: 40 MILLIGRAM DAILY;
  11. BISOPROLOL [Concomitant]
     Active Substance: BISOPROLOL
     Dosage: 5 MILLIGRAM DAILY;

REACTIONS (2)
  - Lactic acidosis [Fatal]
  - Subacute hepatic failure [Fatal]

NARRATIVE: CASE EVENT DATE: 20150304
